FAERS Safety Report 10950196 (Version 1)
Quarter: 2015Q1

REPORT INFORMATION
  Report Type: Report from Study
  Country: US (occurrence: None)
  Receive Date: 20150323
  Receipt Date: 20150323
  Transmission Date: 20150721
  Serious: Yes (Other)
  Sender: FDA-Public Use
  Company Number: 2015US001285

PATIENT
  Age: 57 Year
  Sex: Male

DRUGS (21)
  1. GLASSIA [Suspect]
     Active Substance: .ALPHA.1-PROTEINASE INHIBITOR HUMAN
     Indication: TRANSPLANT REJECTION
     Route: 042
     Dates: start: 20150107, end: 20150129
  2. PREDNISONE. [Concomitant]
     Active Substance: PREDNISONE
  3. TOPROL (METOPROLOL SUCCINATE) [Concomitant]
  4. VFEND [Suspect]
     Active Substance: VORICONAZOLE
     Indication: PRODUCT USED FOR UNKNOWN INDICATION
  5. AZITHROMYCIN [Concomitant]
     Active Substance: AZITHROMYCIN ANHYDROUS
  6. EFFEXOR [Concomitant]
     Active Substance: VENLAFAXINE HYDROCHLORIDE
  7. GLASSIA [Suspect]
     Active Substance: .ALPHA.1-PROTEINASE INHIBITOR HUMAN
     Indication: ALPHA-1 ANTI-TRYPSIN DEFICIENCY
     Route: 042
     Dates: start: 20150107, end: 20150129
  8. CELLCEPT [Concomitant]
     Active Substance: MYCOPHENOLATE MOFETIL\MYCOPHENOLATE MOFETIL HYDROCHLORIDE
  9. CLONAZEPAM. [Concomitant]
     Active Substance: CLONAZEPAM
  10. FLOMAX [Concomitant]
     Active Substance: TAMSULOSIN HYDROCHLORIDE
  11. IRON COMPLEX (IRON) [Concomitant]
  12. DOXYCYCLINE. [Concomitant]
     Active Substance: DOXYCYCLINE
  13. BACTRIM [Concomitant]
     Active Substance: SULFAMETHOXAZOLE\TRIMETHOPRIM
  14. SODIUM BICARBONATE. [Concomitant]
     Active Substance: SODIUM BICARBONATE
  15. VITAMIN C [Concomitant]
     Active Substance: ASCORBIC ACID
  16. CYCLOSPORINE (CICLOPORIN) [Concomitant]
  17. ATORVASTATIN [Concomitant]
     Active Substance: ATORVASTATIN
  18. CALCIUM + VITAMIN D (CALCIUM, COLECALCIFEROL) [Concomitant]
  19. NORCO (HYDROCODONE BITARTRATE, PARACETAMOL) [Concomitant]
  20. ALLOPURINOL. [Concomitant]
     Active Substance: ALLOPURINOL
  21. SYMBICORT (BUDNESONIDE, FORMOTEROL FUMARATE) [Concomitant]

REACTIONS (2)
  - Hepatic enzyme increased [None]
  - Serum sickness [None]

NARRATIVE: CASE EVENT DATE: 201501
